FAERS Safety Report 23566044 (Version 1)
Quarter: 2024Q1

REPORT INFORMATION
  Report Type: Spontaneous
  Country: CN (occurrence: CN)
  Receive Date: 20240226
  Receipt Date: 20240226
  Transmission Date: 20240410
  Serious: Yes (Hospitalization, Other)
  Sender: FDA-Public Use
  Company Number: CN-MLMSERVICE-20240215-4835723-1

PATIENT
  Age: 7 Year
  Sex: Female
  Weight: 28 kg

DRUGS (4)
  1. NAPROXEN SODIUM [Suspect]
     Active Substance: NAPROXEN\NAPROXEN SODIUM
     Indication: Respiratory tract infection
     Route: 048
  2. PRANOPROFEN [Suspect]
     Active Substance: PRANOPROFEN
     Indication: Toxic epidermal necrolysis
     Route: 047
  3. PRANOPROFEN [Suspect]
     Active Substance: PRANOPROFEN
     Indication: Erythema multiforme
  4. SPIRAMYCIN [Concomitant]
     Active Substance: SPIRAMYCIN
     Indication: Respiratory tract infection
     Route: 048

REACTIONS (5)
  - Toxic epidermal necrolysis [Recovering/Resolving]
  - Erythema multiforme [Recovering/Resolving]
  - Condition aggravated [Recovering/Resolving]
  - Cross sensitivity reaction [Recovered/Resolved]
  - Off label use [None]
